FAERS Safety Report 7415624-7 (Version None)
Quarter: 2011Q2

REPORT INFORMATION
  Report Type: 
  Country: None (occurrence: None)
  Receive Date: 20110414
  Receipt Date: 20110408
  Transmission Date: 20111010
  Serious: Yes (Life-Threatening)
  Sender: FDA-Public Use
  Company Number: US-JNJFOC-20100702400

PATIENT
  Sex: Male
  Weight: 74.84 kg

DRUGS (2)
  1. INVEGA SUSTENNA [Concomitant]
     Indication: SCHIZOPHRENIA
     Route: 030
  2. RISPERDAL [Suspect]
     Indication: SCHIZOPHRENIA
     Route: 048

REACTIONS (8)
  - URINE OUTPUT DECREASED [None]
  - INCONTINENCE [None]
  - FLATULENCE [None]
  - INFERTILITY [None]
  - RENAL FAILURE [None]
  - RENAL TUBULAR ACIDOSIS [None]
  - HYPERPROLACTINAEMIA [None]
  - ERECTILE DYSFUNCTION [None]
